FAERS Safety Report 7636031-8 (Version None)
Quarter: 2011Q3

REPORT INFORMATION
  Report Type: 
  Country: None (occurrence: None)
  Receive Date: 20110726
  Receipt Date: 20110714
  Transmission Date: 20111222
  Serious: Yes (Other)
  Sender: FDA-Public Use
  Company Number: US-ROCHE-790376

PATIENT
  Sex: Female

DRUGS (11)
  1. LYRICA [Concomitant]
  2. XENICAL [Suspect]
     Indication: WEIGHT CONTROL
     Route: 065
  3. XENICAL [Suspect]
     Route: 065
     Dates: start: 20110201
  4. FISH OIL [Concomitant]
  5. IBUPROFEN [Concomitant]
  6. ADVAIR DISKUS 100/50 [Concomitant]
  7. VITAMIN B [Concomitant]
  8. VICTOZA [Concomitant]
  9. VITAMIN D [Concomitant]
  10. ACTOPLUS MET [Concomitant]
  11. CARVEDILOL [Concomitant]

REACTIONS (3)
  - WEIGHT INCREASED [None]
  - DIABETES MELLITUS [None]
  - GAIT DISTURBANCE [None]
